FAERS Safety Report 8444334-2 (Version None)
Quarter: 2012Q2

REPORT INFORMATION
  Report Type: 
  Country: None (occurrence: None)
  Receive Date: 20120618
  Receipt Date: 20120612
  Transmission Date: 20120825
  Serious: Yes (Hospitalization)
  Sender: FDA-Public Use
  Company Number: FR-SANOFI-AVENTIS-2011SA042133

PATIENT
  Age: 29 Year
  Sex: Female

DRUGS (2)
  1. ARAVA [Suspect]
     Indication: RHEUMATOID ARTHRITIS
     Route: 048
     Dates: start: 20110620, end: 20110630
  2. NUVARING [Concomitant]
     Indication: CONTRACEPTION
     Route: 067

REACTIONS (3)
  - UTERINE CONTRACTIONS DURING PREGNANCY [None]
  - THREATENED LABOUR [None]
  - MATERNAL EXPOSURE DURING PREGNANCY [None]
